FAERS Safety Report 18497617 (Version 3)
Quarter: 2021Q1

REPORT INFORMATION
  Report Type: Spontaneous
  Country: US (occurrence: US)
  Receive Date: 20201112
  Receipt Date: 20210114
  Transmission Date: 20210419
  Serious: Yes (Death)
  Sender: FDA-Public Use
  Company Number: US-PFIZER INC-2020334446

PATIENT
  Age: 78 Year
  Sex: Male

DRUGS (1)
  1. DAURISMO [Suspect]
     Active Substance: GLASDEGIB
     Indication: MYELOFIBROSIS
     Dosage: 25 MG

REACTIONS (2)
  - Death [Fatal]
  - Off label use [Unknown]
